FAERS Safety Report 18304363 (Version 1)
Quarter: 2020Q3

REPORT INFORMATION
  Report Type: Spontaneous
  Country: AU (occurrence: AU)
  Receive Date: 20200924
  Receipt Date: 20200924
  Transmission Date: 20201103
  Serious: Yes (Hospitalization, Other)
  Sender: FDA-Public Use
  Company Number: AU-VISTAPHARM, INC.-VER202009-001612

PATIENT
  Age: 32 Year
  Sex: Female

DRUGS (1)
  1. HYDROCODONE AND ACETAMINOPHEN [Suspect]
     Active Substance: ACETAMINOPHEN\HYDROCODONE
     Indication: PAIN
     Dosage: 96 X 665 MG
     Route: 048

REACTIONS (3)
  - Metabolic acidosis [Recovered/Resolved]
  - Intentional product misuse [Unknown]
  - Overdose [Unknown]
